FAERS Safety Report 7913519-3 (Version None)
Quarter: 2011Q4

REPORT INFORMATION
  Report Type: 
  Country: None (occurrence: None)
  Receive Date: 20111110
  Receipt Date: 20111027
  Transmission Date: 20120403
  Serious: Yes (Death)
  Sender: FDA-Public Use
  Company Number: 1093938

PATIENT
  Age: 80 Year
  Sex: Female

DRUGS (3)
  1. DEXAMETHASONE [Concomitant]
  2. CARBOPLATIN [Suspect]
     Indication: OVARIAN CANCER
     Dosage: 500 MG, CYCLIC INTRAVENOUS DRIP
     Route: 041
     Dates: start: 20111012, end: 20111012
  3. ONDANSETRON [Concomitant]

REACTIONS (7)
  - SYNCOPE [None]
  - OVARIAN CANCER RECURRENT [None]
  - FLUSHING [None]
  - DRUG HYPERSENSITIVITY [None]
  - CARDIO-RESPIRATORY ARREST [None]
  - MALAISE [None]
  - DYSPNOEA [None]
